FAERS Safety Report 7482040-1 (Version None)
Quarter: 2011Q2

REPORT INFORMATION
  Report Type: 
  Country: None (occurrence: None)
  Receive Date: 20110516
  Receipt Date: 20110502
  Transmission Date: 20111010
  Serious: Yes (Hospitalization)
  Sender: FDA-Public Use
  Company Number: CA-JNJFOC-20110502107

PATIENT
  Sex: Female
  Weight: 77.3 kg

DRUGS (2)
  1. REMICADE [Suspect]
     Indication: CROHN'S DISEASE
     Route: 042
     Dates: start: 20091101
  2. REMICADE [Suspect]
     Route: 042
     Dates: start: 20110323

REACTIONS (2)
  - MUSCULOSKELETAL STIFFNESS [None]
  - VIRAL INFECTION [None]
